FAERS Safety Report 20059879 (Version 1)
Quarter: 2021Q4

REPORT INFORMATION
  Report Type: Spontaneous
  Country: IT (occurrence: IT)
  Receive Date: 20211111
  Receipt Date: 20211111
  Transmission Date: 20220303
  Serious: Yes (Death, Life-Threatening, Hospitalization)
  Sender: FDA-Public Use
  Company Number: IT-Stemline Therapeutics, Inc.-2021ST000066

PATIENT
  Age: 56 Year
  Sex: Male

DRUGS (5)
  1. ELZONRIS [Suspect]
     Active Substance: TAGRAXOFUSP-ERZS
     Indication: Acute myeloid leukaemia
     Dosage: 2 CYCLES
     Route: 042
     Dates: start: 20211025, end: 20211029
  2. ACYCLOVIR [Concomitant]
     Active Substance: ACYCLOVIR
     Indication: Product used for unknown indication
     Dates: start: 20211004
  3. POSACONAZOLE [Concomitant]
     Active Substance: POSACONAZOLE
     Indication: Product used for unknown indication
     Dates: start: 20211004
  4. SULFUMETHOXAZOLE/TRIMETOPRIM [Concomitant]
     Indication: Product used for unknown indication
     Dates: start: 20211004
  5. PREDNISONE [Concomitant]
     Active Substance: PREDNISONE
     Indication: Product used for unknown indication

REACTIONS (1)
  - Pneumonia [Fatal]

NARRATIVE: CASE EVENT DATE: 20211031
